FAERS Safety Report 17922061 (Version 1)
Quarter: 2020Q2

REPORT INFORMATION
  Report Type: Spontaneous
  Country: US (occurrence: US)
  Receive Date: 20200619
  Receipt Date: 20200619
  Transmission Date: 20200714
  Serious: No
  Sender: FDA-Public Use
  Company Number: None

PATIENT
  Age: 27 Year
  Sex: Female
  Weight: 69.75 kg

DRUGS (2)
  1. VAGINAL RING [Concomitant]
  2. ELURYNG [Suspect]
     Active Substance: ETHINYL ESTRADIOL\ETONOGESTREL
     Indication: CONTRACEPTION
     Dates: start: 20191220, end: 20200604

REACTIONS (12)
  - Mood swings [None]
  - Abdominal pain [None]
  - Breast tenderness [None]
  - Loss of libido [None]
  - Product substitution issue [None]
  - Complication associated with device [None]
  - Dyspareunia [None]
  - Nausea [None]
  - Migraine [None]
  - Suicidal ideation [None]
  - Vulvovaginal dryness [None]
  - Quality of life decreased [None]

NARRATIVE: CASE EVENT DATE: 20200110
